FAERS Safety Report 4874742-8 (Version None)
Quarter: 2006Q1

REPORT INFORMATION
  Report Type: 
  Country: None (occurrence: None)
  Receive Date: 20060105
  Receipt Date: 20060105
  Transmission Date: 20060701
  Serious: Yes (Other)
  Sender: FDA-Public Use
  Company Number: None

PATIENT
  Age: 49 Year
  Sex: Female
  Weight: 54.4316 kg

DRUGS (7)
  1. CEFAZOLIN [Suspect]
     Dosage: 2 GM Q 8 H IV
     Route: 042
     Dates: start: 20051216, end: 20051227
  2. VEMURA [Concomitant]
  3. PREDNISONE [Concomitant]
  4. LORTAB [Concomitant]
  5. NAPROSYN [Concomitant]
  6. PLAQUENIL [Concomitant]
  7. THYROID SUPPLEMENTS [Concomitant]

REACTIONS (1)
  - RASH PRURITIC [None]
